FAERS Safety Report 9057828 (Version 2)
Quarter: 2013Q1

REPORT INFORMATION
  Report Type: Other
  Country: FR (occurrence: FR)
  Receive Date: 20130204
  Receipt Date: 20130308
  Transmission Date: 20140127
  Serious: Yes (Hospitalization)
  Sender: FDA-Public Use
  Company Number: FR-ALEXION PHARMACEUTICALS INC.-A201300115

PATIENT
  Age: 44 None
  Sex: Male

DRUGS (14)
  1. SOLIRIS 300MG [Suspect]
     Indication: HAEMOLYTIC URAEMIC SYNDROME
     Dosage: UNK
     Route: 042
     Dates: start: 201112, end: 20121129
  2. SOLIRIS 300MG [Suspect]
     Dosage: UNK
     Route: 042
     Dates: start: 201301
  3. MYCOPHENOLATE MOFETIL [Concomitant]
  4. TACROLIMUS [Concomitant]
  5. PREDNISONE [Concomitant]
  6. PHENOXYMETHYLPENICILLIN [Concomitant]
  7. PANTOZOL [Concomitant]
  8. VALGANCICLOVIR [Concomitant]
  9. DARBEPOETIN ALFA [Concomitant]
  10. VITAMIN D3 [Concomitant]
  11. NEBIVOLOL [Concomitant]
  12. ATORVASTATIN [Concomitant]
  13. ALLOPURINOL [Concomitant]
  14. FUROSEMIDE [Concomitant]

REACTIONS (9)
  - Renal disorder [Unknown]
  - Lymphadenopathy [Unknown]
  - Abscess limb [Recovering/Resolving]
  - Carbuncle [Not Recovered/Not Resolved]
  - Skin infection [Not Recovered/Not Resolved]
  - Bursitis [Unknown]
  - Pyrexia [Recovering/Resolving]
  - Dermatitis [Recovering/Resolving]
  - Cellulitis [Unknown]
